FAERS Safety Report 9417773 (Version 3)
Quarter: 2013Q3

REPORT INFORMATION
  Report Type: Report from Study
  Country: GB (occurrence: GB)
  Receive Date: 20130724
  Receipt Date: 20130827
  Transmission Date: 20140515
  Serious: Yes (Disabling)
  Sender: FDA-Public Use
  Company Number: GB-GLAXOSMITHKLINE-B0883863B

PATIENT
  Age: 73 Year
  Sex: Female

DRUGS (4)
  1. SALMETEROL + FLUTICASONE [Suspect]
     Indication: CHRONIC OBSTRUCTIVE PULMONARY DISEASE
     Route: 055
     Dates: start: 20120911
  2. TIOTROPIUM [Suspect]
     Indication: CHRONIC OBSTRUCTIVE PULMONARY DISEASE
     Route: 055
     Dates: start: 20120911
  3. SPIRIVA [Concomitant]
     Route: 055
     Dates: start: 20120911
  4. SERETIDE [Concomitant]
     Route: 055
     Dates: start: 20120911

REACTIONS (1)
  - Clavicle fracture [Recovered/Resolved]
